FAERS Safety Report 15265386 (Version 1)
Quarter: 2018Q4

REPORT INFORMATION
  Report Type: Report from Study
  Country: ES (occurrence: ES)
  Receive Date: 20180810
  Receipt Date: 20180810
  Transmission Date: 20190204
  Serious: Yes (Hospitalization, Other)
  Sender: FDA-Public Use
  Company Number: ES-TEVA-2018-ES-937749

PATIENT
  Sex: Male
  Weight: 67 kg

DRUGS (17)
  1. OXALIPLATIN. [Suspect]
     Active Substance: OXALIPLATIN
     Indication: COLORECTAL CANCER
     Dosage: FREQUENCY:E2W
     Route: 042
     Dates: start: 20161031, end: 20161031
  2. FOLINATO CALCICO [Suspect]
     Active Substance: LEUCOVORIN CALCIUM
     Indication: COLORECTAL CANCER
     Dosage: FREQUENCY:E2W
     Route: 042
     Dates: start: 20161031, end: 20161031
  3. FOLINATO CALCICO [Suspect]
     Active Substance: LEUCOVORIN CALCIUM
     Route: 042
     Dates: start: 20170109, end: 20170109
  4. RADIOPHARMACEUTICALS [Suspect]
     Active Substance: UNSPECIFIED INGREDIENT
     Indication: COLORECTAL CANCER
     Dosage: 1,864 (43,2 GY)
     Route: 065
     Dates: start: 20170130, end: 20170130
  5. CAPECITABINE. [Suspect]
     Active Substance: CAPECITABINE
     Indication: COLORECTAL CANCER
     Dosage: 25 DAYS/ 28 DAYS
     Route: 065
     Dates: start: 20170303, end: 20170306
  6. 5-FU [Suspect]
     Active Substance: FLUOROURACIL
     Dosage: FREQUENCY:E2W?ROUTE: INTRACUTANEOUS
     Route: 040
     Dates: start: 20170109, end: 20170109
  7. 5-FU [Suspect]
     Active Substance: FLUOROURACIL
     Dosage: FREQUENCY:E2W
     Route: 040
     Dates: start: 20161031, end: 20161031
  8. OMEPRAZOLE. [Concomitant]
     Active Substance: OMEPRAZOLE
     Indication: PROPHYLAXIS AGAINST GASTROINTESTINAL ULCER
     Route: 048
  9. SIMVASTATIN. [Concomitant]
     Active Substance: SIMVASTATIN
     Indication: DYSLIPIDAEMIA
     Route: 048
  10. 5-FU [Suspect]
     Active Substance: FLUOROURACIL
     Indication: COLORECTAL CANCER
     Dosage: FREQUENCY:E2W
     Route: 040
     Dates: start: 20170109, end: 20170109
  11. CAPECITABINE. [Suspect]
     Active Substance: CAPECITABINE
     Indication: COLORECTAL CANCER
     Route: 065
     Dates: start: 20170130, end: 20170130
  12. 5-FU [Suspect]
     Active Substance: FLUOROURACIL
     Dosage: FREQUENCY:E2W?ROUTE: INTRACUTANEOUS
     Route: 042
     Dates: start: 20161031, end: 20161031
  13. IBUPROFEN. [Concomitant]
     Active Substance: IBUPROFEN
     Indication: PROCTALGIA
     Route: 048
  14. ENALAPRIL [Concomitant]
     Active Substance: ENALAPRIL
     Indication: HYPERTENSION
     Route: 048
     Dates: start: 20170109
  15. OXALIPLATIN. [Suspect]
     Active Substance: OXALIPLATIN
     Dosage: FREQUENCY:E2W
     Route: 042
     Dates: start: 20170109, end: 20170109
  16. AFLIBERCEPT [Suspect]
     Active Substance: AFLIBERCEPT
     Indication: COLORECTAL CANCER
     Dosage: FREQUENCY:E2W
     Dates: start: 20170109, end: 20170109
  17. AFLIBERCEPT [Suspect]
     Active Substance: AFLIBERCEPT
     Dosage: FREQUENCY:E2W
     Dates: start: 20161031, end: 20161031

REACTIONS (3)
  - Enteritis [Recovered/Resolved]
  - Proctitis [Recovered/Resolved]
  - Intestinal perforation [Unknown]

NARRATIVE: CASE EVENT DATE: 20170305
